FAERS Safety Report 9786353 (Version 2)
Quarter: 2014Q1

REPORT INFORMATION
  Report Type: Spontaneous
  Country: JP (occurrence: JP)
  Receive Date: 20131227
  Receipt Date: 20140116
  Transmission Date: 20141002
  Serious: Yes (Hospitalization, Disabling)
  Sender: FDA-Public Use
  Company Number: JP-ASTRAZENECA-2013SE93865

PATIENT
  Sex: Female

DRUGS (5)
  1. SEROQUEL [Suspect]
     Route: 048
  2. SEROQUEL [Suspect]
     Dosage: ABOUT 50 TABLET OF 25 MG
     Route: 048
     Dates: start: 201312
  3. PSYCHOTROPIC AGENTS [Suspect]
     Route: 065
  4. PSYCHOTROPIC AGENTS [Suspect]
     Route: 065
     Dates: start: 201312
  5. UNSPECIFIED [Concomitant]

REACTIONS (2)
  - Overdose [Unknown]
  - Depressed level of consciousness [Recovered/Resolved]
